FAERS Safety Report 9314687 (Version 3)
Quarter: 2013Q3

REPORT INFORMATION
  Report Type: Spontaneous
  Country: IE (occurrence: IE)
  Receive Date: 20130529
  Receipt Date: 20130905
  Transmission Date: 20140515
  Serious: Yes (Hospitalization, Other)
  Sender: FDA-Public Use
  Company Number: IE-AMGEN-IRLSP2013037865

PATIENT
  Age: 75 Year
  Sex: Female

DRUGS (1)
  1. PROLIA [Suspect]
     Indication: OSTEOPOROSIS
     Dosage: 60 MG/ML, UNK
     Route: 065
     Dates: start: 20121206

REACTIONS (10)
  - Bradycardia [Unknown]
  - Dizziness [Unknown]
  - Dyspnoea [Unknown]
  - Asthenia [Unknown]
  - Sinus arrhythmia [Unknown]
  - Chest discomfort [Unknown]
  - Non-cardiac chest pain [Unknown]
  - Palpitations [Unknown]
  - Atrial fibrillation [Unknown]
  - Malaise [Unknown]
